FAERS Safety Report 5062066-8 (Version None)
Quarter: 2006Q3

REPORT INFORMATION
  Report Type: 
  Country: None (occurrence: None)
  Receive Date: 20060720
  Receipt Date: 20060720
  Transmission Date: 20061208
  Serious: Yes (Hospitalization)
  Sender: FDA-Public Use
  Company Number: None

PATIENT
  Age: 81 Year
  Sex: Male
  Weight: 77.1 kg

DRUGS (10)
  1. PREDNISONE [Suspect]
     Indication: CHRONIC OBSTRUCTIVE PULMONARY DISEASE
     Dosage: 5 MG DAILY
     Dates: start: 19960101, end: 20060605
  2. MOMETASONE FUROATE [Concomitant]
  3. MORPHINE SO4 [Concomitant]
  4. ACETAMINOPHEN [Concomitant]
  5. SYNTHROID [Concomitant]
  6. FORMOTEROL FUMARATE [Concomitant]
  7. METAPROTERENOL SULFATE [Concomitant]
  8. CHLORPHENIRAMINE MALEATE [Concomitant]
  9. TRIAMCINOLONE ACETONIDE [Concomitant]
  10. METRONIDAZOLE [Concomitant]

REACTIONS (4)
  - ASTHENIA [None]
  - FRACTURE [None]
  - MYOPATHY [None]
  - OSTEOPOROSIS [None]
